FAERS Safety Report 6260363-1 (Version None)
Quarter: 2009Q3

REPORT INFORMATION
  Report Type: 
  Country: None (occurrence: None)
  Receive Date: 20090708
  Receipt Date: 20090701
  Transmission Date: 20100115
  Serious: Yes (Hospitalization)
  Sender: FDA-Public Use
  Company Number: IT-WATSON-2009-05075

PATIENT
  Age: 78 Year
  Sex: Female

DRUGS (3)
  1. DIAZEPAM [Suspect]
     Indication: ANXIETY
     Dosage: UP TO 20MG/DAY
  2. TRAZODONE HYDROCHLORIDE [Suspect]
     Indication: DRUG ABUSE
     Dosage: UP TO 600 MG/DAY
  3. VENLAFAXINE HYDROCHLORIDE [Suspect]
     Indication: DRUG ABUSE
     Dosage: UP TO 300 MG/DAY

REACTIONS (1)
  - MARCHIAFAVA-BIGNAMI DISEASE [None]
